FAERS Safety Report 21389042 (Version 3)
Quarter: 2023Q1

REPORT INFORMATION
  Report Type: Report from Study
  Country: US (occurrence: US)
  Receive Date: 20220929
  Receipt Date: 20230220
  Transmission Date: 20230418
  Serious: Yes (Hospitalization, Disabling)
  Sender: FDA-Public Use
  Company Number: US-ABBVIE-22K-163-4444734-00

PATIENT
  Sex: Male

DRUGS (5)
  1. HUMIRA [Suspect]
     Active Substance: ADALIMUMAB
     Indication: Ankylosing spondylitis
     Dosage: CITRATE FREE
     Route: 058
  2. HUMIRA [Suspect]
     Active Substance: ADALIMUMAB
     Indication: Rheumatoid arthritis
     Dosage: CITRATE FREE
     Route: 058
  3. HUMIRA [Suspect]
     Active Substance: ADALIMUMAB
     Dosage: CITRATE FREE
     Route: 058
     Dates: start: 20211210
  4. HUMIRA [Suspect]
     Active Substance: ADALIMUMAB
     Dosage: CIITRATE FREE
     Route: 058
     Dates: start: 20211210
  5. HUMIRA [Suspect]
     Active Substance: ADALIMUMAB
     Dosage: CITRATE FREE
     Route: 058
     Dates: start: 20200817

REACTIONS (10)
  - Cardiac failure congestive [Unknown]
  - Mobility decreased [Recovering/Resolving]
  - Walking disability [Recovering/Resolving]
  - Joint range of motion decreased [Recovering/Resolving]
  - Loss of personal independence in daily activities [Recovering/Resolving]
  - Impaired self-care [Recovering/Resolving]
  - Condition aggravated [Recovering/Resolving]
  - Dysstasia [Recovering/Resolving]
  - Arthropathy [Unknown]
  - Back disorder [Unknown]
